FAERS Safety Report 5628640-2 (Version None)
Quarter: 2008Q1

REPORT INFORMATION
  Report Type: 
  Country: None (occurrence: None)
  Receive Date: 20080215
  Receipt Date: 20080206
  Transmission Date: 20080703
  Serious: Yes (Hospitalization)
  Sender: FDA-Public Use
  Company Number: US-PFIZER INC-2008011829

PATIENT
  Sex: Female

DRUGS (1)
  1. CARDURA [Suspect]

REACTIONS (2)
  - DYSARTHRIA [None]
  - DYSPHAGIA [None]
